FAERS Safety Report 16438187 (Version 2)
Quarter: 2019Q3

REPORT INFORMATION
  Report Type: Report from Study
  Country: None (occurrence: CA)
  Receive Date: 20190617
  Receipt Date: 20190706
  Transmission Date: 20191004
  Serious: Yes (Other)
  Sender: FDA-Public Use
  Company Number: CA-ABBVIE-19K-028-2820218-00

PATIENT
  Sex: Male

DRUGS (3)
  1. SKYRIZI [Concomitant]
     Active Substance: RISANKIZUMAB-RZAA
     Indication: PRODUCT USED FOR UNKNOWN INDICATION
     Dosage: 75MG/0.83ML
     Route: 058
     Dates: start: 20190611
  2. HUMIRA [Suspect]
     Active Substance: ADALIMUMAB
     Indication: PSORIASIS
     Route: 058
     Dates: start: 2009, end: 201901
  3. HUMIRA [Suspect]
     Active Substance: ADALIMUMAB
     Route: 058
     Dates: start: 20190611

REACTIONS (1)
  - Prostate cancer [Recovered/Resolved]
